FAERS Safety Report 17889764 (Version 8)
Quarter: 2021Q1

REPORT INFORMATION
  Report Type: Report from Study
  Country: US (occurrence: US)
  Receive Date: 20200612
  Receipt Date: 20210122
  Transmission Date: 20210419
  Serious: No
  Sender: FDA-Public Use
  Company Number: NVSC2020US164047

PATIENT
  Age: 83 Year
  Sex: Male

DRUGS (1)
  1. ENTRESTO [Suspect]
     Active Substance: SACUBITRIL\VALSARTAN
     Indication: PRODUCT USED FOR UNKNOWN INDICATION
     Dosage: 50 MG, BID (24/26)
     Route: 048
     Dates: start: 202004

REACTIONS (18)
  - Dyspnoea [Recovering/Resolving]
  - Asthenia [Unknown]
  - Blood creatinine increased [Unknown]
  - Product dose omission issue [Unknown]
  - Feeling hot [Unknown]
  - Hypersensitivity [Unknown]
  - Ejection fraction decreased [Recovering/Resolving]
  - Swelling [Unknown]
  - Micturition disorder [Unknown]
  - Anxiety [Unknown]
  - Cough [Recovering/Resolving]
  - Paraesthesia [Unknown]
  - Weight decreased [Unknown]
  - Hypotension [Recovering/Resolving]
  - Hyperhidrosis [Unknown]
  - Productive cough [Unknown]
  - Weight increased [Unknown]
  - Wrong technique in product usage process [Unknown]

NARRATIVE: CASE EVENT DATE: 202004
